FAERS Safety Report 8865457 (Version 1)
Quarter: 2012Q4

REPORT INFORMATION
  Report Type: 
  Country: US (occurrence: US)
  Receive Date: 20121024
  Receipt Date: 20121024
  Transmission Date: 20130627
  Serious: No
  Sender: FDA-Public Use
  Company Number: US-AMGEN-USASP2012003542

PATIENT
  Age: 58 Year
  Sex: Male
  Weight: 87.08 kg

DRUGS (6)
  1. ENBREL [Suspect]
     Indication: PRODUCT USED FOR UNKNOWN INDICATION
     Dosage: 50 mg, qwk
     Route: 058
     Dates: start: 20110716
  2. ENBREL [Suspect]
     Dosage: 50 mg, qwk
     Route: 058
     Dates: start: 20110716
  3. LIPITOR [Concomitant]
     Dosage: 10 mg, UNK
  4. EXFORGE [Concomitant]
  5. LANSOPRAZOLE [Concomitant]
     Dosage: 15 mg, UNK
  6. TEMAZEPAM [Concomitant]
     Dosage: 15 mg, UNK

REACTIONS (1)
  - Psoriasis [Recovering/Resolving]
